FAERS Safety Report 5812842-6 (Version None)
Quarter: 2008Q3

REPORT INFORMATION
  Report Type: 
  Country: None (occurrence: None)
  Receive Date: 20080717
  Receipt Date: 20080708
  Transmission Date: 20090109
  Serious: Yes (Other)
  Sender: FDA-Public Use
  Company Number: US-NOVOPROD-275391

PATIENT
  Sex: Male
  Weight: 100.68 kg

DRUGS (15)
  1. NORDITROPIN [Suspect]
     Indication: GROWTH HORMONE DEFICIENCY
     Dosage: .3 MG, QD
     Route: 058
     Dates: end: 20080120
  2. CORTISONE [Concomitant]
     Indication: PITUITARY TUMOUR REMOVAL
     Dosage: Q PM
  3. CORTISONE [Concomitant]
     Dosage: 12.5 UNK, UNK
  4. ACTONEL [Concomitant]
     Indication: OSTEOPENIA
     Dosage: 35 MG, QW
     Route: 048
  5. ANDROGEL [Concomitant]
     Indication: HYPOGONADISM
     Dosage: 1%
  6. LEVOTHROID [Concomitant]
     Indication: HYPOTHYROIDISM
     Dosage: .112 MG, QD
     Route: 048
  7. ASPIRIN [Concomitant]
     Indication: CARDIOVASCULAR EVENT PROPHYLAXIS
     Dosage: 81 MG, QD
     Route: 048
  8. CALCIUM [Concomitant]
     Indication: OSTEOPENIA
     Dosage: 1500 MG, QD
     Route: 048
  9. VYTORIN [Concomitant]
     Indication: LIPIDS
     Dosage: 40MG/10MG
     Route: 048
  10. LISINOPRIL [Concomitant]
     Indication: HYPERTENSION
     Dosage: 20MG/12.5MG
  11. FLONASPRAY [Concomitant]
     Indication: SEASONAL ALLERGY
     Dosage: UNK
     Route: 055
  12. DEXAMETHASONE [Concomitant]
     Indication: PITUITARY TUMOUR REMOVAL
     Dosage: UNK, PRN
  13. VITAMIN A [Concomitant]
     Indication: VITAMIN D DEFICIENCY
     Dosage: 50000 U, BIMONTHLY
  14. MULTIVITAMIN                       /00831701/ [Concomitant]
     Indication: VITAMIN SUPPLEMENTATION
     Dosage: UNK, QD
  15. VITAMIN B-12 [Concomitant]
     Indication: VITAMIN SUPPLEMENTATION
     Dosage: UNK

REACTIONS (2)
  - ANXIETY [None]
  - HYPERSENSITIVITY [None]
